FAERS Safety Report 8302635-2 (Version None)
Quarter: 2012Q1

REPORT INFORMATION
  Report Type: 
  Country: None (occurrence: None)
  Receive Date: 20120326
  Receipt Date: 20110815
  Transmission Date: 20120608
  Serious: Yes (Other)
  Sender: FDA-Public Use
  Company Number: PHEH2011US01690

PATIENT

DRUGS (1)
  1. TASIGNA [Suspect]

REACTIONS (2)
  - GASTROOESOPHAGEAL REFLUX DISEASE [None]
  - BODY TEMPERATURE INCREASED [None]
